FAERS Safety Report 4643480-9 (Version None)
Quarter: 2005Q2

REPORT INFORMATION
  Report Type: 
  Country: None (occurrence: None)
  Receive Date: 20050325
  Receipt Date: 20041215
  Transmission Date: 20051028
  Serious: No
  Sender: FDA-Public Use
  Company Number: IND-AE-04-SAN-024

PATIENT
  Age: 80 Year
  Sex: Female
  Weight: 62.5964 kg

DRUGS (5)
  1. SANCTURA [Suspect]
     Indication: HYPERTONIC BLADDER
     Dosage: 20MG-QD-ORAL
     Route: 048
     Dates: start: 20041105, end: 20041107
  2. NORVASC [Concomitant]
  3. TOPROL-XL [Concomitant]
  4. THYROID TAB [Concomitant]
  5. ESTRADIOL [Concomitant]

REACTIONS (1)
  - DRY MOUTH [None]
